FAERS Safety Report 21350975 (Version 1)
Quarter: 2022Q3

REPORT INFORMATION
  Report Type: Spontaneous
  Country: GR (occurrence: GR)
  Receive Date: 20220919
  Receipt Date: 20220919
  Transmission Date: 20221026
  Serious: Yes (Other)
  Sender: FDA-Public Use
  Company Number: None

PATIENT
  Age: 37 Year
  Sex: Female

DRUGS (4)
  1. DOSTINEX [Suspect]
     Active Substance: CABERGOLINE
     Indication: Lactation inhibition therapy
     Dosage: SHE TOOK 5 TABLETS IN TOTAL
     Route: 048
     Dates: start: 20210823, end: 20210825
  2. ZILISTEN [Concomitant]
     Dosage: UNK
     Dates: start: 20210820, end: 20210823
  3. ACETAMINOPHEN [Concomitant]
     Active Substance: ACETAMINOPHEN
     Dosage: UNK
     Dates: start: 20210820, end: 20210823
  4. DICLOFENAC [Concomitant]
     Active Substance: DICLOFENAC
     Dates: start: 20210820, end: 20210823

REACTIONS (2)
  - Electrocardiogram PR shortened [Unknown]
  - Bradycardia [Recovered/Resolved]

NARRATIVE: CASE EVENT DATE: 20210823
